FAERS Safety Report 16490551 (Version 1)
Quarter: 2019Q3

REPORT INFORMATION
  Report Type: Spontaneous
  Country: US (occurrence: US)
  Receive Date: 20190627
  Receipt Date: 20190627
  Transmission Date: 20191004
  Serious: No
  Sender: FDA-Public Use
  Company Number: None

PATIENT
  Age: 44 Year
  Sex: Female
  Weight: 56.25 kg

DRUGS (1)
  1. OCEAN POTION SPF 30 [Suspect]
     Active Substance: AVOBENZONE\HOMOSALATE\OCTISALATE\OCTOCRYLENE

REACTIONS (2)
  - Application site hypersensitivity [None]
  - Hypersensitivity [None]

NARRATIVE: CASE EVENT DATE: 20190419
